FAERS Safety Report 11025733 (Version 1)
Quarter: 2015Q2

REPORT INFORMATION
  Report Type: Spontaneous
  Country: CZ (occurrence: CZ)
  Receive Date: 20150414
  Receipt Date: 20150414
  Transmission Date: 20150821
  Serious: Yes (Hospitalization)
  Sender: FDA-Public Use
  Company Number: CZ-JNJFOC-20150406001

PATIENT
  Age: 51 Year
  Sex: Female
  Weight: 62 kg

DRUGS (1)
  1. REMICADE [Suspect]
     Active Substance: INFLIXIMAB
     Indication: RHEUMATOID ARTHRITIS
     Route: 042
     Dates: start: 20131125

REACTIONS (2)
  - Syncope [Unknown]
  - Migraine [Unknown]

NARRATIVE: CASE EVENT DATE: 20150206
